FAERS Safety Report 21173714 (Version 1)
Quarter: 2022Q3

REPORT INFORMATION
  Report Type: Spontaneous
  Country: US (occurrence: US)
  Receive Date: 20220804
  Receipt Date: 20220804
  Transmission Date: 20221026
  Serious: No
  Sender: FDA-Public Use
  Company Number: US-PERRIGO-21US028404

PATIENT
  Age: 65 Year
  Sex: Male
  Weight: 111.11 kg

DRUGS (7)
  1. LORATADINE [Suspect]
     Active Substance: LORATADINE
     Indication: Sinus congestion
     Dosage: 10 MG, QD, PRN
     Route: 048
     Dates: end: 2006
  2. LORATADINE [Suspect]
     Active Substance: LORATADINE
     Indication: Headache
     Dosage: 10 MG, QD, PRN
     Route: 048
     Dates: start: 2006, end: 20210919
  3. LORATADINE [Suspect]
     Active Substance: LORATADINE
     Indication: Perennial allergy
  4. METFORMIN [Concomitant]
     Active Substance: METFORMIN HYDROCHLORIDE
     Indication: Diabetes mellitus
     Dosage: UNKNOWN, UNKNOWN
     Route: 065
  5. LISINOPRIL [Concomitant]
     Active Substance: LISINOPRIL
     Indication: Hypertension
     Dosage: UNKNOWN, UNKNOWN
     Route: 065
  6. GABAPENTIN [Concomitant]
     Active Substance: GABAPENTIN
     Indication: Neuropathy peripheral
     Dosage: UNKNOWN, UNKNOWN
     Route: 065
  7. ASPIRIN [Concomitant]
     Active Substance: ASPIRIN
     Indication: Product used for unknown indication
     Dosage: UNKNOWN, UNKNOWN
     Route: 065

REACTIONS (3)
  - Contraindicated product administered [Recovered/Resolved]
  - Off label use [Recovered/Resolved]
  - Expired product administered [Recovered/Resolved]

NARRATIVE: CASE EVENT DATE: 20210801
